FAERS Safety Report 8122437-X (Version None)
Quarter: 2012Q1

REPORT INFORMATION
  Report Type: 
  Country: None (occurrence: None)
  Receive Date: 20120207
  Receipt Date: 20120207
  Transmission Date: 20120608
  Serious: Yes (Other)
  Sender: FDA-Public Use
  Company Number: None

PATIENT
  Age: 86 Year
  Sex: Male

DRUGS (1)
  1. ZELBORAF [Suspect]
     Dosage: 4 TABS BID PO
     Route: 048

REACTIONS (2)
  - FATIGUE [None]
  - RASH [None]
